FAERS Safety Report 11243553 (Version 1)
Quarter: 2015Q3

REPORT INFORMATION
  Report Type: Report from Study
  Country: US (occurrence: US)
  Receive Date: 20150707
  Receipt Date: 20150707
  Transmission Date: 20151125
  Serious: Yes (Hospitalization)
  Sender: FDA-Public Use
  Company Number: US-JNJFOC-20150701998

PATIENT
  Age: 73 Year
  Sex: Male

DRUGS (1)
  1. XARELTO [Suspect]
     Active Substance: RIVAROXABAN
     Indication: THROMBOSIS
     Route: 048
     Dates: end: 201505

REACTIONS (4)
  - Upper gastrointestinal haemorrhage [Unknown]
  - Malaise [Unknown]
  - Lung neoplasm malignant [Unknown]
  - Adverse event [Unknown]

NARRATIVE: CASE EVENT DATE: 201501
